FAERS Safety Report 10590398 (Version 1)
Quarter: 2014Q4

REPORT INFORMATION
  Report Type: Spontaneous
  Country: US (occurrence: US)
  Receive Date: 20141118
  Receipt Date: 20141118
  Transmission Date: 20150529
  Serious: Yes (Hospitalization, Other)
  Sender: FDA-Public Use
  Company Number: US-ACTAVIS-2014-24950

PATIENT
  Age: 80 Year
  Sex: Female

DRUGS (1)
  1. FIORINAL [Suspect]
     Active Substance: ASPIRIN\BUTALBITAL\CAFFEINE
     Indication: MIGRAINE
     Dosage: UNK, DAILY
     Route: 065

REACTIONS (3)
  - Arthritis [Unknown]
  - Knee arthroplasty [Unknown]
  - Drug dependence [Unknown]
